FAERS Safety Report 9459896 (Version 1)
Quarter: 2013Q3

REPORT INFORMATION
  Report Type: Spontaneous
  Country: SI (occurrence: SI)
  Receive Date: 20130815
  Receipt Date: 20130815
  Transmission Date: 20140515
  Serious: Yes (Other)
  Sender: FDA-Public Use
  Company Number: SI-009507513-1308SVN004073

PATIENT
  Age: 26 Year
  Sex: Female

DRUGS (1)
  1. NUVARING [Suspect]
     Indication: CONTRACEPTION
     Dosage: 0.120MG/0,015MG/24H
     Route: 067
     Dates: start: 2011, end: 201303

REACTIONS (5)
  - Fear [Unknown]
  - Breast pain [Unknown]
  - Depression [Unknown]
  - Depression [Unknown]
  - Premenstrual syndrome [Unknown]
